FAERS Safety Report 8455586-7 (Version None)
Quarter: 2012Q2

REPORT INFORMATION
  Report Type: 
  Country: None (occurrence: None)
  Receive Date: 20120621
  Receipt Date: 20120614
  Transmission Date: 20120825
  Serious: Yes (Hospitalization)
  Sender: FDA-Public Use
  Company Number: CA-B.I. PHARMACEUTICALS,INC./RIDGEFIELD-2012-CN-01243CN

PATIENT
  Age: 84 Year
  Sex: Male

DRUGS (1)
  1. PRADAXA [Suspect]

REACTIONS (4)
  - SEPSIS [None]
  - URINARY TRACT INFECTION [None]
  - DEHYDRATION [None]
  - PULMONARY HAEMORRHAGE [None]
